FAERS Safety Report 5383859-3 (Version None)
Quarter: 2007Q3

REPORT INFORMATION
  Report Type: 
  Country: None (occurrence: None)
  Receive Date: 20070711
  Receipt Date: 20070705
  Transmission Date: 20080115
  Serious: Yes (Hospitalization)
  Sender: FDA-Public Use
  Company Number: PHEH2007US09408

PATIENT
  Age: 74 Year
  Sex: Male
  Weight: 84.353 kg

DRUGS (11)
  1. TEKTURNA [Suspect]
     Indication: HYPERTENSION
     Dosage: 150 MG, QD
     Route: 048
     Dates: start: 20070615
  2. HYZAAR [Suspect]
     Indication: HYPERTENSION
     Dosage: 100/25 MG/DAILY
     Route: 048
     Dates: start: 20070615
  3. DIGOXIN [Concomitant]
     Dosage: 0.25 MG, QD
     Route: 048
  4. COZAAR [Concomitant]
     Dosage: 100 MG, QD
     Route: 048
  5. ZANTAC [Concomitant]
     Dosage: 150 MG, BID
     Route: 048
  6. COUMADIN [Concomitant]
     Dosage: 2 TABLETS 2 MG AS DIRECTED
  7. COUMADIN [Concomitant]
     Dosage: 4 MG, QHS
     Route: 048
  8. KLOR-CON [Concomitant]
     Dosage: 20 MEQ, BID
     Route: 048
  9. HYDROCHLOROTHIAZIDE [Concomitant]
     Dosage: 25 MG, QD
     Route: 048
  10. CARDIZEM CD [Concomitant]
     Dosage: 360 MG, QD
     Route: 048
  11. LASIX [Concomitant]
     Dosage: 40 MG, BID
     Route: 048

REACTIONS (4)
  - GLOMERULAR FILTRATION RATE DECREASED [None]
  - HYPOTENSION [None]
  - RENAL FAILURE ACUTE [None]
  - VERTIGO [None]
